FAERS Safety Report 13758676 (Version 4)
Quarter: 2017Q4

REPORT INFORMATION
  Report Type: Report from Study
  Country: None (occurrence: US)
  Receive Date: 20170717
  Receipt Date: 20171012
  Transmission Date: 20180320
  Serious: Yes (Hospitalization, Disabling, Other)
  Sender: FDA-Public Use
  Company Number: US-ABBVIE-17P-163-2035712-00

PATIENT
  Age: 59 Year
  Sex: Male

DRUGS (5)
  1. VENCLEXTA [Suspect]
     Active Substance: VENETOCLAX
     Route: 048
  2. VENCLEXTA [Suspect]
     Active Substance: VENETOCLAX
     Route: 048
  3. VENCLEXTA [Suspect]
     Active Substance: VENETOCLAX
     Indication: CHRONIC LYMPHOCYTIC LEUKAEMIA
     Route: 048
     Dates: start: 20160825
  4. VENCLEXTA [Suspect]
     Active Substance: VENETOCLAX
     Route: 048
     Dates: start: 20170206
  5. VENCLEXTA [Suspect]
     Active Substance: VENETOCLAX
     Route: 048

REACTIONS (15)
  - Anal fistula [Unknown]
  - Impaired work ability [Unknown]
  - Vertebral foraminal stenosis [Unknown]
  - Nausea [Recovered/Resolved]
  - General physical health deterioration [Unknown]
  - Cholelithiasis [Recovered/Resolved]
  - Fatigue [Unknown]
  - Pyrexia [Unknown]
  - Retching [Recovered/Resolved]
  - Intervertebral disc degeneration [Unknown]
  - Lymph node pain [Unknown]
  - Transaminases increased [Unknown]
  - Lymphadenopathy [Unknown]
  - Rash papular [Unknown]
  - Diarrhoea [Recovered/Resolved]

NARRATIVE: CASE EVENT DATE: 20161221
